FAERS Safety Report 17910926 (Version 1)
Quarter: 2020Q2

REPORT INFORMATION
  Report Type: Spontaneous
  Country: US (occurrence: US)
  Receive Date: 20200617
  Receipt Date: 20200617
  Transmission Date: 20200714
  Serious: No
  Sender: FDA-Public Use
  Company Number: None

PATIENT
  Age: 81 Year
  Sex: Male
  Weight: 80 kg

DRUGS (22)
  1. UNASYN 3GM [Concomitant]
     Dates: start: 20200609
  2. CEFEPIME [Concomitant]
     Active Substance: CEFEPIME HYDROCHLORIDE
     Dates: start: 20200610
  3. METRONIDAZOLE. [Concomitant]
     Active Substance: METRONIDAZOLE
     Dates: start: 20200610
  4. CLINIMIX [Concomitant]
     Active Substance: ALANINE\ARGININE\DEXTROSE\GLYCINE\HISTIDINE\ISOLEUCINE\LEUCINE\LYSINE\METHIONINE\PHENYLALANINE\PROLINE\SERINE\THREONINE\TRYPTOPHAN\TYROSINE\VALINE
     Dates: start: 20200610, end: 20200611
  5. MIDAZOLAM. [Concomitant]
     Active Substance: MIDAZOLAM
     Dates: start: 20200611
  6. SUCCINYLCHOLINE [Concomitant]
     Active Substance: SUCCINYLCHOLINE
     Dates: start: 20200611
  7. MORPHINE [Concomitant]
     Active Substance: MORPHINE
     Dates: start: 20200607
  8. NOREPINEPHRINE DRIP [Concomitant]
     Dates: start: 20200611
  9. MEROPENEM. [Concomitant]
     Active Substance: MEROPENEM
     Dates: start: 20200610
  10. METOLAZONE. [Concomitant]
     Active Substance: METOLAZONE
     Dates: start: 20200611
  11. METOPROLOL. [Concomitant]
     Active Substance: METOPROLOL
     Dates: start: 20200609
  12. DILTIAZEM DRIP [Concomitant]
     Dates: start: 20200610
  13. POTASSIUM CHLORIDE. [Concomitant]
     Active Substance: POTASSIUM CHLORIDE
     Dates: start: 20200611
  14. PROPOFOL. [Concomitant]
     Active Substance: PROPOFOL
     Dates: start: 20200611
  15. REMDESIVIR. [Suspect]
     Active Substance: REMDESIVIR
     Indication: SARS-COV-2 TEST POSITIVE
     Dosage: ?          OTHER FREQUENCY:ONCE;?
     Route: 041
     Dates: start: 20200610, end: 20200611
  16. ETOMIDATE 20MG [Concomitant]
     Dates: start: 20200611
  17. HEPARIN [Concomitant]
     Active Substance: HEPARIN SODIUM
     Dates: start: 20200609
  18. ALBUMIN 25% [Concomitant]
     Active Substance: ALBUMIN HUMAN
     Dates: start: 20200610
  19. LINEZOLID 600MG [Concomitant]
     Active Substance: LINEZOLID
     Dates: start: 20200610
  20. REMDESIVIR. [Suspect]
     Active Substance: REMDESIVIR
     Indication: SARS-COV-2 TEST POSITIVE
     Route: 041
     Dates: start: 20200611, end: 20200612
  21. DIGOXIN 125MCG [Concomitant]
     Dates: start: 20200611
  22. FUROSEMIDE. [Concomitant]
     Active Substance: FUROSEMIDE
     Dates: start: 20200610

REACTIONS (1)
  - Renal impairment [None]

NARRATIVE: CASE EVENT DATE: 20200612
